FAERS Safety Report 8779902 (Version 1)
Quarter: 2012Q4

REPORT INFORMATION
  Report Type: 
  Country: US (occurrence: US)
  Receive Date: 20120912
  Receipt Date: 20120912
  Transmission Date: 20130627
  Serious: No
  Sender: FDA-Public Use
  Company Number: US-VERTEX PHARMACEUTICAL INC.-AE-2012-002086

PATIENT
  Age: 64 Year
  Sex: Female
  Weight: 79.55 kg

DRUGS (7)
  1. INCIVEK [Suspect]
     Indication: HEPATITIS C
     Route: 048
     Dates: start: 20120201
  2. PEGASYS [Concomitant]
     Indication: HEPATITIS C
     Route: 058
     Dates: start: 20120201
  3. RIBAVIRIN [Concomitant]
     Indication: HEPATITIS C
     Route: 048
     Dates: start: 20120201
  4. NADOLOL [Concomitant]
     Route: 048
  5. LEVOTHYROXINE [Concomitant]
     Route: 048
  6. MULTIPLE VITAMIN [Concomitant]
     Route: 048
  7. ENSURE LIQUID (VANILLA) [Concomitant]

REACTIONS (3)
  - Weight decreased [Unknown]
  - Vomiting [Not Recovered/Not Resolved]
  - Anaemia [Unknown]
